FAERS Safety Report 8905148 (Version 2)
Quarter: 2012Q4

REPORT INFORMATION
  Report Type: 
  Country: US (occurrence: US)
  Receive Date: 20121109
  Receipt Date: 20121204
  Transmission Date: 20130627
  Serious: Yes (Other)
  Sender: FDA-Public Use
  Company Number: US-ELI_LILLY_AND_COMPANY-US201210010180

PATIENT
  Age: 54 Year
  Sex: Female
  Weight: 131.97 kg

DRUGS (9)
  1. BYDUREON [Suspect]
     Indication: WEIGHT DECREASED
     Dosage: 2 mg, weekly (1/W)
     Route: 058
     Dates: start: 20121014, end: 20121028
  2. BYDUREON [Suspect]
     Dosage: 2 mg, weekly (1/W)
     Route: 058
  3. ABILIFY [Concomitant]
     Indication: ANXIETY
     Dosage: UNK
     Route: 048
  4. SEROQUEL [Concomitant]
     Indication: ANXIETY
     Dosage: UNK
     Route: 048
  5. NALTREXONE [Concomitant]
     Indication: ANXIETY
     Dosage: UNK
     Route: 048
  6. LUNESTA [Concomitant]
     Indication: ANXIETY
     Dosage: UNK
     Route: 048
  7. EFFEXOR [Concomitant]
     Indication: ANXIETY
     Dosage: UNK
     Route: 048
  8. LAMICTAL [Concomitant]
     Indication: ANXIETY
     Dosage: UNK
     Route: 048
  9. ZYPREXA [Concomitant]
     Indication: ANXIETY
     Dosage: UNK
     Route: 048

REACTIONS (6)
  - Anxiety [Not Recovered/Not Resolved]
  - Depression [Not Recovered/Not Resolved]
  - Drug interaction [Not Recovered/Not Resolved]
  - Tremor [Not Recovered/Not Resolved]
  - Headache [Not Recovered/Not Resolved]
  - Off label use [Recovered/Resolved]
